FAERS Safety Report 6639719-0 (Version None)
Quarter: 2010Q1

REPORT INFORMATION
  Report Type: 
  Country: None (occurrence: None)
  Receive Date: 20100318
  Receipt Date: 20100305
  Transmission Date: 20100710
  Serious: Yes (Other)
  Sender: FDA-Public Use
  Company Number: PHHY2010GB06364

PATIENT
  Sex: Male

DRUGS (1)
  1. CLOZARIL [Suspect]
     Indication: SCHIZOPHRENIA
     Dosage: UNK
     Dates: start: 20070111

REACTIONS (4)
  - HAEMOGLOBIN DECREASED [None]
  - HAEMORRHAGE [None]
  - IRON DEFICIENCY ANAEMIA [None]
  - PLATELET COUNT INCREASED [None]
